FAERS Safety Report 7799303-2 (Version None)
Quarter: 2011Q4

REPORT INFORMATION
  Report Type: 
  Country: None (occurrence: None)
  Receive Date: 20111006
  Receipt Date: 20110926
  Transmission Date: 20120403
  Serious: Yes (Life-Threatening, Hospitalization)
  Sender: FDA-Public Use
  Company Number: JP-JNJFOC-20101100756

PATIENT
  Age: 57 Year
  Sex: Female
  Weight: 52 kg

DRUGS (36)
  1. REMICADE [Suspect]
     Route: 042
     Dates: start: 20100426
  2. NEOISCOTIN [Concomitant]
     Indication: ANTIBIOTIC PROPHYLAXIS
     Route: 048
     Dates: start: 20100305, end: 20100610
  3. DEPAS [Concomitant]
     Route: 048
     Dates: start: 20100521, end: 20100523
  4. AZULFIDINE [Concomitant]
     Indication: PSORIATIC ARTHROPATHY
     Route: 048
     Dates: start: 20100730
  5. ACETAMINOPHEN [Concomitant]
     Indication: PROPHYLAXIS
     Route: 048
     Dates: end: 20100426
  6. PREDOHAN [Concomitant]
     Indication: PSORIATIC ARTHROPATHY
     Route: 048
     Dates: start: 20100622, end: 20100624
  7. METHOTREXATE [Suspect]
     Route: 048
     Dates: start: 20100316, end: 20100328
  8. METHOTREXATE [Suspect]
     Route: 048
     Dates: start: 20091204
  9. METHOTREXATE [Suspect]
     Route: 048
     Dates: start: 20090930
  10. DOVONEX [Concomitant]
     Indication: PSORIATIC ARTHROPATHY
     Route: 061
  11. CELECOXIB [Concomitant]
     Indication: PSORIATIC ARTHROPATHY
     Route: 048
     Dates: end: 20100617
  12. METHOTREXATE [Suspect]
     Indication: PSORIATIC ARTHROPATHY
     Route: 048
     Dates: start: 20090826
  13. FOLIC ACID [Concomitant]
     Indication: PROPHYLAXIS
     Route: 048
     Dates: end: 20100610
  14. PREDNISOLONE [Concomitant]
     Route: 048
     Dates: start: 20100709
  15. PREDOHAN [Concomitant]
     Route: 048
     Dates: start: 20100625, end: 20100708
  16. REMICADE [Suspect]
     Indication: PSORIATIC ARTHROPATHY
     Route: 042
     Dates: start: 20100329
  17. METHOTREXATE [Suspect]
     Route: 048
     Dates: start: 20100414, end: 20100611
  18. METHOTREXATE [Suspect]
     Route: 048
     Dates: start: 20100329, end: 20100413
  19. METHOTREXATE [Suspect]
     Route: 048
     Dates: start: 20091028
  20. ATARAX [Concomitant]
     Indication: PSORIATIC ARTHROPATHY
     Route: 048
     Dates: start: 20100426, end: 20100509
  21. PREDNISOLONE [Concomitant]
     Route: 048
     Dates: start: 20100618, end: 20100619
  22. ACTONEL [Concomitant]
     Indication: PROPHYLAXIS
     Route: 048
     Dates: start: 20100709
  23. ALLEGRA [Concomitant]
     Indication: PROPHYLAXIS
     Route: 048
     Dates: end: 20100426
  24. DEPAS [Concomitant]
     Indication: ANXIETY DISORDER
     Route: 048
     Dates: start: 20100611, end: 20100714
  25. PREDNISOLONE [Concomitant]
     Route: 048
     Dates: start: 20100617, end: 20100617
  26. PREDNISOLONE [Concomitant]
     Route: 048
     Dates: start: 20100620, end: 20100621
  27. MUCOSTA [Concomitant]
     Indication: PROPHYLAXIS
     Route: 048
     Dates: start: 20100611, end: 20100704
  28. METHOTREXATE [Suspect]
     Route: 048
     Dates: start: 20100205, end: 20100315
  29. PREDNISOLONE [Concomitant]
     Route: 048
     Dates: start: 20100614, end: 20100616
  30. PREDNISOLONE [Concomitant]
     Route: 048
     Dates: start: 20100622, end: 20100624
  31. AZULFIDINE [Concomitant]
     Route: 048
     Dates: start: 20100709, end: 20100729
  32. REMICADE [Suspect]
     Route: 042
     Dates: start: 20100315
  33. METHOTREXATE [Suspect]
     Route: 048
     Dates: start: 20090805
  34. RABEPRAZOLE SODIUM [Concomitant]
     Indication: PROPHYLAXIS
     Route: 048
  35. PYRIDOXAL PHOSPHATE [Concomitant]
     Indication: PROPHYLAXIS
     Route: 048
     Dates: end: 20100617
  36. PREDNISOLONE [Concomitant]
     Indication: PSORIATIC ARTHROPATHY
     Route: 048
     Dates: start: 20100611, end: 20100611

REACTIONS (1)
  - PNEUMOCYSTIS JIROVECI PNEUMONIA [None]
